FAERS Safety Report 8397551-4 (Version None)
Quarter: 2012Q2

REPORT INFORMATION
  Report Type: 
  Country: None (occurrence: None)
  Receive Date: 20120531
  Receipt Date: 20120523
  Transmission Date: 20120825
  Serious: Yes (Life-Threatening, Hospitalization, Other)
  Sender: FDA-Public Use
  Company Number: US-SANOFI-AVENTIS-2012SA023902

PATIENT
  Age: 72 Year
  Sex: Male
  Weight: 75 kg

DRUGS (18)
  1. ASPIRIN [Concomitant]
  2. LANTUS [Suspect]
     Dosage: IN AM DOSE:21 UNIT(S)
     Route: 058
     Dates: start: 20060101
  3. PRILOSEC [Concomitant]
  4. CELEXA [Concomitant]
  5. LANTUS [Suspect]
     Dosage: IN AM DOSE:21 UNIT(S)
     Route: 058
     Dates: start: 20060101
  6. TAMSULOSIN HYDROCHLORIDE [Concomitant]
  7. LANTUS [Suspect]
     Indication: TYPE 2 DIABETES MELLITUS
     Dosage: IN AM DOSE:21 UNIT(S)
     Route: 058
     Dates: start: 20060101
  8. SOLOSTAR [Suspect]
     Dates: start: 20060101
  9. SOLOSTAR [Suspect]
     Dates: start: 20060101
  10. LOPRESSOR [Concomitant]
  11. NOVOLOG [Concomitant]
  12. LANTUS [Suspect]
     Dosage: IN AM DOSE:21 UNIT(S)
     Route: 058
     Dates: start: 20060101
  13. SOLOSTAR [Suspect]
     Indication: TYPE 2 DIABETES MELLITUS
     Dates: start: 20060101
  14. SOLOSTAR [Suspect]
     Dates: start: 20060101
  15. LIPITOR [Concomitant]
  16. KEPPRA [Concomitant]
  17. FLEXERIL [Concomitant]
  18. REGULAR INSULIN [Suspect]
     Indication: TYPE 2 DIABETES MELLITUS
     Route: 065

REACTIONS (4)
  - BLOOD GLUCOSE DECREASED [None]
  - CORONARY ARTERY DISEASE [None]
  - DEVICE MALFUNCTION [None]
  - CEREBROVASCULAR ACCIDENT [None]
